FAERS Safety Report 20945678 (Version 2)
Quarter: 2022Q3

REPORT INFORMATION
  Report Type: Report from Study
  Country: CA (occurrence: CA)
  Receive Date: 20220610
  Receipt Date: 20220711
  Transmission Date: 20221027
  Serious: Yes (Hospitalization)
  Sender: FDA-Public Use
  Company Number: CA-GLAXOSMITHKLINE-CA2022AMR090961

PATIENT

DRUGS (5)
  1. MEPOLIZUMAB [Suspect]
     Active Substance: MEPOLIZUMAB
     Indication: Asthma
     Dosage: 100 MG, EVERY 4 WEEKS
     Route: 058
     Dates: start: 20211222
  2. PREDNISONE [Suspect]
     Active Substance: PREDNISONE
     Indication: Sputum discoloured
     Dosage: UNK
     Route: 065
     Dates: start: 20220607
  3. ALVESCO [Concomitant]
     Active Substance: CICLESONIDE
     Indication: Product used for unknown indication
     Dosage: 3 PUFF(S), Z, 200 MCG 2 PUFFS Q AM + 1 PUFF Q PM
     Route: 055
  4. OLODATEROL HYDROCHLORIDE\TIOTROPIUM BROMIDE MONOHYDRATE [Concomitant]
     Active Substance: OLODATEROL HYDROCHLORIDE\TIOTROPIUM BROMIDE MONOHYDRATE
     Indication: Product used for unknown indication
     Dosage: 2 PUFFS QD
     Route: 055
  5. VENTOLIN [Concomitant]
     Active Substance: ALBUTEROL SULFATE
     Indication: Product used for unknown indication
     Dosage: 2 PUFF(S), Z, 100 MCG 2 PUFFS PRN
     Route: 055

REACTIONS (4)
  - Hospitalisation [Recovered/Resolved]
  - Sputum discoloured [Recovered/Resolved]
  - Hypotension [Unknown]
  - Dyspnoea exertional [Unknown]

NARRATIVE: CASE EVENT DATE: 20220501
